FAERS Safety Report 23243482 (Version 1)
Quarter: 2023Q4

REPORT INFORMATION
  Report Type: Spontaneous
  Country: US (occurrence: US)
  Receive Date: 20231130
  Receipt Date: 20231130
  Transmission Date: 20240110
  Serious: Yes (Hospitalization)
  Sender: FDA-Public Use
  Company Number: US-STRIDES ARCOLAB LIMITED-2023SP017298

PATIENT
  Age: 56 Year
  Sex: Male

DRUGS (10)
  1. PREDNISOLONE [Suspect]
     Active Substance: PREDNISOLONE
     Indication: Thrombotic thrombocytopenic purpura
     Dosage: UNK
     Route: 065
     Dates: start: 202011
  2. CARBOPLATIN [Suspect]
     Active Substance: CARBOPLATIN
     Indication: Lung adenocarcinoma
     Dosage: UNK, CYCLICAL (COMPLETED 4 CYCLES OF COMBINATION THERAPY WITH PEMBROLIZUMAB AND PEMETREXED)
     Route: 065
     Dates: start: 202006, end: 202008
  3. CARBOPLATIN [Suspect]
     Active Substance: CARBOPLATIN
     Dosage: UNK, ADDITIONAL DOSE WITH PEMETREXED
     Route: 065
     Dates: start: 202010
  4. PEMBROLIZUMAB [Suspect]
     Active Substance: PEMBROLIZUMAB
     Indication: Lung adenocarcinoma
     Dosage: UNK, CYCLICAL (COMPLETED 4 CYCLES OF COMBINATION THERAPY WITH PEMETREXED AND CARBOPLATIN)
     Route: 065
     Dates: start: 202006, end: 202008
  5. PEMBROLIZUMAB [Suspect]
     Active Substance: PEMBROLIZUMAB
     Dosage: UNK, 5TH MAINTENANCE DOSE WITH PEMETREXED
     Route: 065
     Dates: start: 202009
  6. PEMETREXED [Suspect]
     Active Substance: PEMETREXED
     Indication: Lung adenocarcinoma
     Dosage: UNK, CYCLICAL (COMPLETED 4 CYCLES OF COMBINATION THERAPY WITH PEMBROLIZUMAB AND CARBOPLATIN)
     Route: 065
     Dates: start: 202006, end: 202008
  7. PEMETREXED [Suspect]
     Active Substance: PEMETREXED
     Dosage: UNK, 5TH MAINTENANCE DOSE WITH PEMBROLIZUMAB
     Route: 065
     Dates: start: 202009
  8. PEMETREXED [Suspect]
     Active Substance: PEMETREXED
     Dosage: UNK, ADDITIONAL DOSE WITH CARBOPLATIN
     Route: 065
     Dates: start: 202010
  9. PEMETREXED [Suspect]
     Active Substance: PEMETREXED
     Dosage: UNK (RESUMED)
     Route: 065
  10. AMLODIPINE [Concomitant]
     Active Substance: AMLODIPINE BESYLATE
     Indication: Hypertension
     Dosage: UNK
     Route: 065

REACTIONS (2)
  - Clostridium difficile colitis [Unknown]
  - Off label use [Unknown]

NARRATIVE: CASE EVENT DATE: 20200101
